FAERS Safety Report 7741280-4 (Version None)
Quarter: 2011Q3

REPORT INFORMATION
  Report Type: 
  Country: None (occurrence: None)
  Receive Date: 20110909
  Receipt Date: 20110907
  Transmission Date: 20111222
  Serious: Yes (Death)
  Sender: FDA-Public Use
  Company Number: CA-B.I. PHARMACEUTICALS,INC./RIDGEFIELD-2011-CN-01302CN

PATIENT
  Sex: Female

DRUGS (3)
  1. BUPIVACAINE HCL [Concomitant]
     Indication: CANCER PAIN
     Dates: start: 20110608
  2. MORPHINE [Concomitant]
     Indication: CANCER PAIN
     Dates: start: 20110608
  3. CATAPRES [Suspect]
     Indication: CANCER PAIN
     Dates: start: 20110617

REACTIONS (1)
  - PULMONARY EMBOLISM [None]
